FAERS Safety Report 6293073-5 (Version None)
Quarter: 2009Q3

REPORT INFORMATION
  Report Type: 
  Country: None (occurrence: None)
  Receive Date: 20090731
  Receipt Date: 20090727
  Transmission Date: 20100115
  Serious: Yes (Death, Other)
  Sender: FDA-Public Use
  Company Number: US-BRISTOL-MYERS SQUIBB COMPANY-14714257

PATIENT
  Age: 50 Year
  Sex: Female

DRUGS (14)
  1. ORENCIA [Suspect]
     Dosage: APPROXIMATELY 4-5 INFUSION. DURATION:SEVERAL WEEKS LAST INFUSION:20JUL09
     Dates: start: 20090721, end: 20090721
  2. ZITHROMAX [Concomitant]
     Indication: PNEUMONIA
  3. LEVOTHYROXINE SODIUM [Concomitant]
  4. PROMETHAZINE [Concomitant]
  5. DIVALPROEX SODIUM [Concomitant]
  6. ALBUTEROL [Concomitant]
     Dosage: 2 D.F=2 PUFFS; Q4HRS PRN
  7. DOXEPIN HCL [Concomitant]
     Dosage: HS
  8. LORCET-HD [Concomitant]
     Dosage: 1 D.F=LOMG/650MG;Q6HRS PRN
  9. LORAZEPAM [Concomitant]
     Dosage: PRN
  10. OMEPRAZOLE [Concomitant]
  11. ATENOLOL [Concomitant]
  12. MAXALT [Concomitant]
  13. FENTANYL [Concomitant]
     Dosage: PATCH
  14. LIDOCAINE [Concomitant]
     Dosage: LIDOCAINE 5% 700MG PATCH L2HRS ON + L2HRS OFF

REACTIONS (2)
  - DEATH [None]
  - PNEUMONIA [None]
